FAERS Safety Report 5502890-8 (Version None)
Quarter: 2007Q4

REPORT INFORMATION
  Report Type: 
  Country: None (occurrence: None)
  Receive Date: 20071031
  Receipt Date: 20071031
  Transmission Date: 20080405
  Serious: Yes (Other)
  Sender: FDA-Public Use
  Company Number: A0690758A

PATIENT
  Age: 26 Year
  Sex: Female

DRUGS (4)
  1. ALLI [Suspect]
     Dates: start: 20070928, end: 20071030
  2. LOESTRIN FE 1/20 [Concomitant]
  3. MULTI-VITAMIN [Concomitant]
  4. LORATADINE [Concomitant]

REACTIONS (1)
  - HEPATIC ENZYME INCREASED [None]
